FAERS Safety Report 13162455 (Version 1)
Quarter: 2017Q1

REPORT INFORMATION
  Report Type: Spontaneous
  Country: US (occurrence: US)
  Receive Date: 20170127
  Receipt Date: 20170127
  Transmission Date: 20170428
  Serious: Yes (Hospitalization)
  Sender: FDA-Public Use
  Company Number: None

PATIENT
  Age: 80 Year
  Sex: Female
  Weight: 57.8 kg

DRUGS (2)
  1. AZD1775 [Suspect]
     Active Substance: INVESTIGATIONAL PRODUCT
     Indication: COLON CANCER
     Dosage: ?          OTHER FREQUENCY:BID X 3 DAYS;?
     Route: 048
     Dates: start: 20160922, end: 20161013
  2. IRINOTECAN [Suspect]
     Active Substance: IRINOTECAN
     Indication: COLON CANCER
     Dosage: ?          OTHER FREQUENCY:Q2WEEKS;?
     Route: 042
     Dates: start: 20160922, end: 20161013

REACTIONS (14)
  - Asthenia [None]
  - Blood creatinine increased [None]
  - Neutropenia [None]
  - Thrombocytopenia [None]
  - Abdominal pain [None]
  - Pain [None]
  - Vomiting [None]
  - Nausea [None]
  - Deep vein thrombosis [None]
  - Diarrhoea [None]
  - Enterocolitis [None]
  - Anaemia [None]
  - Hypertension [None]
  - Abdominal pain lower [None]

NARRATIVE: CASE EVENT DATE: 20161017
